FAERS Safety Report 11290561 (Version 2)
Quarter: 2015Q3

REPORT INFORMATION
  Report Type: Spontaneous
  Country: FR (occurrence: FR)
  Receive Date: 20150722
  Receipt Date: 20150809
  Transmission Date: 20151125
  Serious: Yes (Hospitalization)
  Sender: FDA-Public Use
  Company Number: FR-ASTRAZENECA-2015SE70049

PATIENT
  Age: 20 Year
  Sex: Male

DRUGS (4)
  1. LOXAPAC [Concomitant]
     Active Substance: LOXAPINE SUCCINATE
  2. XEROQUEL [Suspect]
     Active Substance: QUETIAPINE FUMARATE
     Indication: SCHIZOPHRENIA
     Route: 048
     Dates: end: 2014
  3. LEPTICUR [Concomitant]
     Active Substance: TROPATEPINE HYDROCHLORIDE
  4. AVODART [Concomitant]
     Active Substance: DUTASTERIDE

REACTIONS (2)
  - Sickle cell anaemia with crisis [Recovered/Resolved]
  - Priapism [Recovered/Resolved]

NARRATIVE: CASE EVENT DATE: 20150619
